FAERS Safety Report 6824652-1 (Version None)
Quarter: 2010Q3

REPORT INFORMATION
  Report Type: 
  Country: None (occurrence: None)
  Receive Date: 20100708
  Receipt Date: 20061107
  Transmission Date: 20110219
  Serious: No
  Sender: FDA-Public Use
  Company Number: US-PFIZER INC-2006139687

PATIENT
  Sex: Female
  Weight: 65.77 kg

DRUGS (7)
  1. CHANTIX [Suspect]
     Indication: EX-TOBACCO USER
     Dates: start: 20060101
  2. ALL OTHER THERAPEUTIC PRODUCTS [Suspect]
     Indication: INFLUENZA
     Dates: start: 20060101, end: 20060101
  3. CLONAZEPAM [Concomitant]
  4. CHONDROITIN/GLUCOSAMINE [Concomitant]
  5. ADVIL LIQUI-GELS [Concomitant]
  6. CENTRUM [Concomitant]
  7. CALCIUM CARBONATE [Concomitant]

REACTIONS (4)
  - DIZZINESS [None]
  - NAUSEA [None]
  - PHOTOPHOBIA [None]
  - VISUAL IMPAIRMENT [None]
